FAERS Safety Report 10283911 (Version 1)
Quarter: 2014Q3

REPORT INFORMATION
  Report Type: Spontaneous
  Country: US (occurrence: None)
  Receive Date: 20140702
  Receipt Date: 20140702
  Transmission Date: 20150326
  Serious: No
  Sender: FDA-Public Use
  Company Number: None

PATIENT
  Age: 60 Year
  Sex: Male
  Weight: 80.5 kg

DRUGS (1)
  1. AMLODIPINE [Suspect]
     Active Substance: AMLODIPINE BESYLATE
     Dosage: 5 MG, EVERY DAY, PO
     Route: 048
     Dates: start: 20130207, end: 20130207

REACTIONS (2)
  - Headache [None]
  - Paraesthesia [None]

NARRATIVE: CASE EVENT DATE: 20130207
